FAERS Safety Report 6160440-X (Version None)
Quarter: 2009Q2

REPORT INFORMATION
  Report Type: 
  Country: None (occurrence: None)
  Receive Date: 20090416
  Receipt Date: 20090331
  Transmission Date: 20091009
  Serious: Yes (Other)
  Sender: FDA-Public Use
  Company Number: 8044614

PATIENT
  Age: 40 Year
  Sex: Male

DRUGS (1)
  1. METHYLPHENIDATE HCL [Suspect]
     Indication: ATTENTION DEFICIT/HYPERACTIVITY DISORDER

REACTIONS (9)
  - AGITATION [None]
  - AMPHETAMINES POSITIVE [None]
  - ASTHENIA [None]
  - DRUG DEPENDENCE [None]
  - FATIGUE [None]
  - INTENTIONAL DRUG MISUSE [None]
  - LEGAL PROBLEM [None]
  - MYDRIASIS [None]
  - SELF-MEDICATION [None]
